FAERS Safety Report 6769700-2 (Version None)
Quarter: 2010Q2

REPORT INFORMATION
  Report Type: 
  Country: None (occurrence: None)
  Receive Date: 20100615
  Receipt Date: 20100610
  Transmission Date: 20101027
  Serious: Yes (Hospitalization)
  Sender: FDA-Public Use
  Company Number: DE-ROCHE-696342

PATIENT
  Sex: Male
  Weight: 80 kg

DRUGS (1)
  1. CAPECITABINE [Suspect]
     Indication: COLORECTAL CANCER
     Dosage: LAST DOSE PRIOR TO EVENT: 22JAN2010
     Route: 048
     Dates: start: 20091214

REACTIONS (3)
  - ESCHERICHIA INFECTION [None]
  - INTESTINAL ANASTOMOSIS COMPLICATION [None]
  - POSTOPERATIVE WOUND INFECTION [None]
